FAERS Safety Report 4308376-0 (Version None)
Quarter: 2004Q1

REPORT INFORMATION
  Report Type: 
  Country: None (occurrence: None)
  Receive Date: 20040225
  Receipt Date: 20021230
  Transmission Date: 20041129
  Serious: Yes (Disabling)
  Sender: FDA-Public Use
  Company Number: WAES 0212USA00181

PATIENT
  Age: 78 Year
  Sex: Male
  Weight: 78.0187 kg

DRUGS (5)
  1. ZOCOR [Suspect]
     Indication: HYPERCHOLESTEROLAEMIA
     Dosage: 40 MG/ DAILY/ PO
     Route: 048
     Dates: start: 20010401, end: 20021124
  2. ZOCOR [Suspect]
     Indication: HYPERCHOLESTEROLAEMIA
     Dosage: PO
     Route: 048
     Dates: start: 20030101
  3. NEURONTIN [Concomitant]
  4. PROZAC [Concomitant]
  5. LITHIUM CARBONATE [Concomitant]

REACTIONS (1)
  - POLYMYALGIA RHEUMATICA [None]
